FAERS Safety Report 9518649 (Version 2)
Quarter: 2013Q3

REPORT INFORMATION
  Report Type: Spontaneous
  Country: FR (occurrence: FR)
  Receive Date: 20130912
  Receipt Date: 20130913
  Transmission Date: 20140515
  Serious: Yes (Hospitalization)
  Sender: FDA-Public Use
  Company Number: PHHY2013FR099704

PATIENT
  Age: 88 Year
  Sex: Female

DRUGS (9)
  1. NISISCO [Suspect]
     Indication: HYPERTENSION
     Dosage: 1 DF (80 MG VALS AND 12.5 MG HCTZ), IN 1 DAY
     Route: 048
  2. OMIX [Suspect]
     Indication: MICTURITION DISORDER
     Dosage: 1 DF (0.4 MG), IN 1 DAY
     Route: 048
  3. LAROXYL [Suspect]
     Indication: ABDOMINAL PAIN
     Dosage: 15 GTT, DAILY
     Route: 048
  4. LAROXYL [Suspect]
     Dosage: UNK UKN, UNK
     Route: 048
  5. LYSANXIA [Suspect]
     Dosage: 0.5 DF, (10 MG) DAILY
     Route: 048
  6. MOVICOL [Concomitant]
     Dosage: UNK UKN, UNK
  7. L THYROXINE [Concomitant]
     Dosage: UNK UKN, UNK
  8. SERETIDE [Concomitant]
  9. STILNOX [Concomitant]
     Dosage: UNK UKN, UNK

REACTIONS (2)
  - Malaise [Recovered/Resolved]
  - Labile blood pressure [Recovered/Resolved]
